FAERS Safety Report 9299639 (Version 2)
Quarter: 2013Q2

REPORT INFORMATION
  Report Type: Spontaneous
  Country: US (occurrence: US)
  Receive Date: 20130521
  Receipt Date: 20130527
  Transmission Date: 20140414
  Serious: No
  Sender: FDA-Public Use
  Company Number: US-BIOGENIDEC-2013BI041230

PATIENT
  Age: 53 Year
  Sex: Female

DRUGS (2)
  1. AVONEX [Suspect]
     Indication: MULTIPLE SCLEROSIS
     Route: 030
  2. AVONEX [Suspect]
     Indication: MULTIPLE SCLEROSIS
     Route: 030
     Dates: start: 20111030

REACTIONS (4)
  - Injection site reaction [Unknown]
  - Rash [Not Recovered/Not Resolved]
  - Increased tendency to bruise [Recovered/Resolved with Sequelae]
  - Injection site urticaria [Not Recovered/Not Resolved]
